FAERS Safety Report 9808125 (Version 1)
Quarter: 2014Q1

REPORT INFORMATION
  Report Type: Spontaneous
  Country: JP (occurrence: JP)
  Receive Date: 20140110
  Receipt Date: 20140110
  Transmission Date: 20141002
  Serious: Yes (Death)
  Sender: FDA-Public Use
  Company Number: JP-MALLINCKRODT-T201305231

PATIENT
  Age: 25 Year
  Sex: Female
  Weight: 41.1 kg

DRUGS (6)
  1. METHADONE [Suspect]
     Indication: CANCER PAIN
     Dosage: 5 MG, (15 MG DAILY DOSE)
     Route: 048
     Dates: start: 20131015, end: 20131015
  2. OXYFAST [Concomitant]
     Dosage: 200 MG, UNK
     Route: 051
     Dates: start: 20131015, end: 20131017
  3. PANTOSIN [Concomitant]
     Dosage: 300 MG, UNK
     Route: 048
     Dates: end: 20131015
  4. MAGMITT [Concomitant]
     Dosage: 990 MG, UNK
     Route: 048
     Dates: end: 20131015
  5. LYRICA [Concomitant]
     Dosage: 300 MG, UNK
     Route: 048
     Dates: end: 20131015
  6. RINDERON [Concomitant]
     Dosage: 4 MG, UNK
     Route: 048
     Dates: end: 20131015

REACTIONS (2)
  - Osteosarcoma recurrent [Fatal]
  - Rhabdomyosarcoma [Fatal]
